FAERS Safety Report 21578387 (Version 1)
Quarter: 2022Q4

REPORT INFORMATION
  Report Type: Report from Study
  Country: US (occurrence: US)
  Receive Date: 20221110
  Receipt Date: 20221110
  Transmission Date: 20230113
  Serious: No
  Sender: FDA-Public Use
  Company Number: US-ABBVIE-4159399

PATIENT
  Sex: Female
  Weight: 72.574 kg

DRUGS (8)
  1. RINVOQ [Suspect]
     Active Substance: UPADACITINIB
     Indication: Dermatitis atopic
     Dosage: START DATE TEXT: BETWEEN FEB AND MAR?STOP DATE TEXT: BETWEEN MAY AND APR
     Route: 048
  2. Pfizer [Concomitant]
     Indication: COVID-19 immunisation
     Dosage: PFIZER
     Route: 030
     Dates: start: 20210917, end: 20210917
  3. Pfizer [Concomitant]
     Indication: COVID-19 immunisation
     Dosage: PFIZER
     Route: 030
     Dates: start: 20211008, end: 20211008
  4. Pfizer [Concomitant]
     Indication: COVID-19 immunisation
     Dosage: PFIZER
     Route: 030
     Dates: start: 20220822, end: 20220822
  5. Pfizer [Concomitant]
     Indication: COVID-19 immunisation
     Dosage: PFIZER
     Route: 030
     Dates: start: 20211118, end: 20211118
  6. VISTARIL [Concomitant]
     Active Substance: HYDROXYZINE PAMOATE
     Indication: Antiallergic therapy
     Dosage: 50 MILLIGRAM
  7. CIBINQO [Concomitant]
     Active Substance: ABROCITINIB
     Indication: Product used for unknown indication
  8. ADBRY [Concomitant]
     Active Substance: TRALOKINUMAB-LDRM
     Indication: Product used for unknown indication

REACTIONS (5)
  - Urticaria [Recovering/Resolving]
  - Unevaluable event [Not Recovered/Not Resolved]
  - Swelling [Unknown]
  - Pruritus [Recovering/Resolving]
  - Rash [Recovering/Resolving]
